FAERS Safety Report 9754609 (Version 1)
Quarter: 2013Q4

REPORT INFORMATION
  Report Type: Spontaneous
  Country: US (occurrence: US)
  Receive Date: 20131213
  Receipt Date: 20131213
  Transmission Date: 20140711
  Serious: No
  Sender: FDA-Public Use
  Company Number: US-GLAXOSMITHKLINE-A1002621A

PATIENT
  Sex: Male

DRUGS (2)
  1. NICODERM CQ [Suspect]
     Indication: PRODUCT USED FOR UNKNOWN INDICATION
     Route: 062
  2. NICORETTE [Suspect]
     Route: 002

REACTIONS (1)
  - Abnormal dreams [Unknown]
